FAERS Safety Report 23517295 (Version 1)
Quarter: 2024Q1

REPORT INFORMATION
  Report Type: Report from Study
  Country: CA (occurrence: CA)
  Receive Date: 20240213
  Receipt Date: 20240213
  Transmission Date: 20240410
  Serious: Yes (Death)
  Sender: FDA-Public Use
  Company Number: CA-002147023-NVSC2024CA018199

PATIENT
  Age: 59 Year
  Sex: Male

DRUGS (1)
  1. MAYZENT [Suspect]
     Active Substance: SIPONIMOD
     Indication: Secondary progressive multiple sclerosis
     Dosage: 2 MG, QMO
     Route: 048
     Dates: start: 20210224

REACTIONS (1)
  - Accident [Fatal]

NARRATIVE: CASE EVENT DATE: 20230706
